FAERS Safety Report 5368492-1 (Version None)
Quarter: 2007Q2

REPORT INFORMATION
  Report Type: 
  Country: None (occurrence: None)
  Receive Date: 20070620
  Receipt Date: 20070611
  Transmission Date: 20071010
  Serious: Yes (Hospitalization)
  Sender: FDA-Public Use
  Company Number: 2007BI010494

PATIENT
  Age: 35 Year
  Sex: Male

DRUGS (9)
  1. AVONEX [Suspect]
     Indication: MULTIPLE SCLEROSIS
     Dosage: 30 UG QW IM
     Route: 030
     Dates: start: 20050426
  2. LISINOPRIL [Concomitant]
  3. LEXAPRO [Concomitant]
  4. PREVACID [Concomitant]
  5. GLUCOZIDE [Concomitant]
  6. ULTRAM [Concomitant]
  7. GLUCOPHAGE [Concomitant]
  8. CRANBERRY PILL [Concomitant]
  9. MOTRIN [Concomitant]

REACTIONS (1)
  - CELLULITIS [None]
